FAERS Safety Report 25332127 (Version 1)
Quarter: 2025Q2

REPORT INFORMATION
  Report Type: Other
  Country: AU (occurrence: AU)
  Receive Date: 20250519
  Receipt Date: 20250519
  Transmission Date: 20250717
  Serious: Yes (Life-Threatening, Hospitalization)
  Sender: LGM PHARMA SOLUTIONS, LLC
  Company Number: AU-LGM Pharma Solutions, LLC-2176949

PATIENT
  Age: 87 Year
  Sex: Female

DRUGS (2)
  1. ASPIRIN [Suspect]
     Active Substance: ASPIRIN
     Indication: Prophylaxis
  2. PANTOPRAZOLE SODIUM [Concomitant]
     Active Substance: PANTOPRAZOLE SODIUM

REACTIONS (1)
  - Oesophageal intramural haematoma [Recovering/Resolving]
